FAERS Safety Report 22628843 (Version 4)
Quarter: 2023Q4

REPORT INFORMATION
  Report Type: Report from Study
  Country: US (occurrence: None)
  Receive Date: 20230622
  Receipt Date: 20231107
  Transmission Date: 20240110
  Serious: Yes (Other)
  Sender: FDA-Public Use
  Company Number: US-ROCHE-3370128

PATIENT
  Age: 57 Year
  Sex: Female
  Weight: 52 kg

DRUGS (3)
  1. ATEZOLIZUMAB [Suspect]
     Active Substance: ATEZOLIZUMAB
     Indication: Gallbladder adenocarcinoma
     Dosage: CURRENT TREATMENT DATE :08/JUN/2023, 29/SEP/2023
     Route: 041
     Dates: start: 20230309, end: 20230309
  2. COBIMETINIB [Suspect]
     Active Substance: COBIMETINIB
     Indication: Gallbladder adenocarcinoma
     Dosage: ON 17/MAR/2023, MOST RECENT DOSE OF COBIMETINIB WAS ADMINISTERED PRIOR TO AE.?CURRENT TREATMENT DATE
     Route: 048
     Dates: start: 20230309, end: 20230317
  3. VARLILUMAB [Suspect]
     Active Substance: VARLILUMAB
     Indication: Gallbladder adenocarcinoma
     Dosage: CURRENT TREATMENT DATE :08/JUN/2023,  29/SEP/2023
     Route: 042
     Dates: start: 20230309, end: 20230309

REACTIONS (1)
  - Rash pustular [Not Recovered/Not Resolved]

NARRATIVE: CASE EVENT DATE: 20230317
